FAERS Safety Report 16069801 (Version 1)
Quarter: 2019Q1

REPORT INFORMATION
  Report Type: Spontaneous
  Country: US (occurrence: US)
  Receive Date: 20190314
  Receipt Date: 20190314
  Transmission Date: 20190418
  Serious: Yes (Life-Threatening, Hospitalization, Other)
  Sender: FDA-Public Use
  Company Number: US-JNJFOC-20190307100

PATIENT
  Age: 26 Year
  Sex: Male

DRUGS (2)
  1. LOPERAMIDE [Suspect]
     Active Substance: LOPERAMIDE
     Indication: PRODUCT USED FOR UNKNOWN INDICATION
     Route: 048
  2. LOPERAMIDE [Suspect]
     Active Substance: LOPERAMIDE
     Indication: PRODUCT USED FOR UNKNOWN INDICATION
     Route: 048

REACTIONS (7)
  - Electrocardiogram abnormal [Unknown]
  - Cardio-respiratory arrest [Recovered/Resolved]
  - Dizziness [Unknown]
  - Tachycardia [Unknown]
  - Torsade de pointes [Recovered/Resolved]
  - Drug abuse [Unknown]
  - Overdose [Unknown]
